FAERS Safety Report 20511132 (Version 1)
Quarter: 2022Q1

REPORT INFORMATION
  Report Type: Spontaneous
  Country: US (occurrence: None)
  Receive Date: 20220223
  Receipt Date: 20220223
  Transmission Date: 20220423
  Serious: No
  Sender: FDA-Public Use
  Company Number: None

PATIENT
  Age: 53 Year
  Sex: Female

DRUGS (1)
  1. KESIMPTA [Suspect]
     Active Substance: OFATUMUMAB
     Indication: Multiple sclerosis
     Dosage: 20MG OTHER?
     Route: 058
     Dates: start: 202201

REACTIONS (2)
  - Contraindicated product prescribed [None]
  - Contraindicated product administered [None]

NARRATIVE: CASE EVENT DATE: 20220122
